FAERS Safety Report 6245977-7 (Version None)
Quarter: 2009Q2

REPORT INFORMATION
  Report Type: 
  Country: None (occurrence: None)
  Receive Date: 20090626
  Receipt Date: 20080919
  Transmission Date: 20091009
  Serious: No
  Sender: FDA-Public Use
  Company Number: A0748577A

PATIENT
  Age: 71 Year
  Sex: Female

DRUGS (2)
  1. IMITREX [Suspect]
     Indication: MIGRAINE
     Dosage: 100MG UNKNOWN
     Route: 048
     Dates: start: 20080919
  2. IMITREX [Concomitant]
     Dosage: 50MG UNKNOWN
     Route: 048

REACTIONS (1)
  - SOMNOLENCE [None]
